FAERS Safety Report 6947401-5 (Version None)
Quarter: 2010Q3

REPORT INFORMATION
  Report Type: 
  Country: None (occurrence: None)
  Receive Date: 20100827
  Receipt Date: 20090908
  Transmission Date: 20110219
  Serious: No
  Sender: FDA-Public Use
  Company Number: US-ABBOTT-09P-163-0596859-00

PATIENT
  Sex: Female

DRUGS (3)
  1. NIASPAN [Suspect]
     Indication: BLOOD CHOLESTEROL INCREASED
     Dates: start: 20090501, end: 20090902
  2. COQ10 [Concomitant]
     Indication: BLOOD CHOLESTEROL INCREASED
  3. LAVAZA [Concomitant]
     Indication: BLOOD CHOLESTEROL INCREASED

REACTIONS (5)
  - FATIGUE [None]
  - FEELING HOT [None]
  - PRURITUS [None]
  - RASH ERYTHEMATOUS [None]
  - URINE ABNORMALITY [None]
